FAERS Safety Report 10029155 (Version 1)
Quarter: 2014Q1

REPORT INFORMATION
  Report Type: Report from Study
  Country: DE (occurrence: DE)
  Receive Date: 20140321
  Receipt Date: 20140321
  Transmission Date: 20141002
  Serious: Yes (Other)
  Sender: FDA-Public Use
  Company Number: PHHY2014DE034217

PATIENT
  Sex: Female

DRUGS (1)
  1. EXTAVIA [Suspect]
     Indication: MULTIPLE SCLEROSIS
     Dosage: UKN, QOD
     Route: 058
     Dates: start: 20110801, end: 201308

REACTIONS (2)
  - Multiple sclerosis relapse [Recovered/Resolved]
  - Herpes virus infection [Recovered/Resolved]
